FAERS Safety Report 23764159 (Version 2)
Quarter: 2024Q2

REPORT INFORMATION
  Report Type: Report from Study
  Country: US (occurrence: US)
  Receive Date: 20240419
  Receipt Date: 20240515
  Transmission Date: 20240716
  Serious: Yes (Other)
  Sender: FDA-Public Use
  Company Number: US-DECIPHERA PHARMACEUTICALS LLC-2024US000303

PATIENT
  Age: 75 Year
  Sex: Male

DRUGS (2)
  1. QINLOCK [Suspect]
     Active Substance: RIPRETINIB
     Indication: Gastrointestinal stromal tumour
     Dosage: 50 MILLIGRAM, BID
     Route: 048
     Dates: start: 20221008
  2. QINLOCK [Suspect]
     Active Substance: RIPRETINIB
     Dosage: 50 MILLIGRAM, BID (MOUTH TWICE DAILY WITH OR WITHOUT FOOD)
     Route: 048

REACTIONS (2)
  - Atypical pneumonia [Recovered/Resolved]
  - Bronchitis [Recovered/Resolved]
